FAERS Safety Report 8376314-X (Version None)
Quarter: 2012Q2

REPORT INFORMATION
  Report Type: 
  Country: None (occurrence: None)
  Receive Date: 20120522
  Receipt Date: 20120517
  Transmission Date: 20120825
  Serious: Yes (Other)
  Sender: FDA-Public Use
  Company Number: US-UCBSA-055982

PATIENT
  Age: 38 Year
  Sex: Female

DRUGS (1)
  1. CIMZIA [Suspect]
     Indication: CROHN'S DISEASE
     Dates: start: 20100427

REACTIONS (4)
  - CHOLELITHIASIS [None]
  - SMALL INTESTINAL STENOSIS [None]
  - HERNIA [None]
  - ABDOMINAL PAIN [None]
